FAERS Safety Report 23876660 (Version 2)
Quarter: 2024Q2

REPORT INFORMATION
  Report Type: Spontaneous
  Country: CH (occurrence: CH)
  Receive Date: 20240521
  Receipt Date: 20240529
  Transmission Date: 20240716
  Serious: Yes (Disabling)
  Sender: FDA-Public Use
  Company Number: CH-NOVOPROD-1220215

PATIENT
  Sex: Female
  Weight: 84 kg

DRUGS (6)
  1. OZEMPIC [Suspect]
     Active Substance: SEMAGLUTIDE
     Dosage: 1 MG, QW
     Route: 058
     Dates: start: 202312
  2. OZEMPIC [Suspect]
     Active Substance: SEMAGLUTIDE
     Indication: Weight control
     Dosage: 2 MG, QW
     Route: 058
     Dates: start: 20220916, end: 202310
  3. CALCIUM CARBONATE [Concomitant]
     Active Substance: CALCIUM CARBONATE
     Indication: Osteoporosis
     Dosage: 500/800
     Route: 048
     Dates: start: 20231012
  4. SODIUM CHONDROITIN SULFATE [Concomitant]
     Active Substance: SODIUM CHONDROITIN SULFATE
     Indication: Osteoarthritis
     Dosage: DOAGE: 800 (NO UNIT)
     Dates: start: 20230221
  5. CALCIUM\CHOLECALCIFEROL [Concomitant]
     Active Substance: CALCIUM\CHOLECALCIFEROL
     Indication: Product used for unknown indication
     Dosage: UNK
  6. CHOLECALCIFEROL [Concomitant]
     Active Substance: CHOLECALCIFEROL
     Indication: Product used for unknown indication
     Dosage: UNK

REACTIONS (2)
  - Colitis microscopic [Not Recovered/Not Resolved]
  - Product use in unapproved indication [Unknown]

NARRATIVE: CASE EVENT DATE: 20220916
